FAERS Safety Report 16060261 (Version 5)
Quarter: 2019Q2

REPORT INFORMATION
  Report Type: Report from Study
  Country: None (occurrence: CH)
  Receive Date: 20190312
  Receipt Date: 20190427
  Transmission Date: 20190711
  Serious: Yes (Death, Hospitalization)
  Sender: FDA-Public Use
  Company Number: CH-ABBVIE-19S-151-2699847-00

PATIENT
  Age: 84 Year
  Sex: Male

DRUGS (4)
  1. DUODOPA [Suspect]
     Active Substance: CARBIDOPA\LEVODOPA
     Dosage: MD 3.5 ML, CRD 3.5 ML/H, CRN 2.1 ML/H, ED 1.5 ML 24 H THERAPY 1 CASSETTE / 24 HOURS
     Route: 050
     Dates: start: 20170810
  2. DUODOPA [Suspect]
     Active Substance: CARBIDOPA\LEVODOPA
     Indication: PARKINSON^S DISEASE
     Route: 050
     Dates: start: 20130910
  3. AMANTADIN [Concomitant]
     Active Substance: AMANTADINE
     Indication: PARKINSON^S DISEASE
     Route: 042
  4. DUODOPA [Suspect]
     Active Substance: CARBIDOPA\LEVODOPA
     Dosage: MD 5 ML, CRD 3.5 ML/H, CRN 2.1 ML/H, ED 1.5 ML 24 H THERAPY
     Route: 050
     Dates: end: 20170810

REACTIONS (5)
  - Procedural complication [Fatal]
  - Peritoneal adhesions [Fatal]
  - Volvulus [Fatal]
  - Intestinal infarction [Fatal]
  - Large intestinal obstruction [Fatal]

NARRATIVE: CASE EVENT DATE: 20190312
